FAERS Safety Report 7987806-7 (Version None)
Quarter: 2011Q4

REPORT INFORMATION
  Report Type: 
  Country: None (occurrence: None)
  Receive Date: 20111216
  Receipt Date: 20101222
  Transmission Date: 20120403
  Serious: Yes (Other)
  Sender: FDA-Public Use
  Company Number: US-BRISTOL-MYERS SQUIBB COMPANY-15376262

PATIENT
  Age: 55 Year
  Sex: Male

DRUGS (4)
  1. ABILIFY [Suspect]
     Dosage: RECEIVED 1 TABLET
  2. SIMVASTATIN [Concomitant]
     Dosage: NIGHTLY
  3. LISINOPRIL [Concomitant]
     Dosage: NIGHTLY
  4. LEXAPRO [Concomitant]

REACTIONS (5)
  - VISUAL IMPAIRMENT [None]
  - HEADACHE [None]
  - FEELING ABNORMAL [None]
  - DEPRESSION [None]
  - RESTLESSNESS [None]
